FAERS Safety Report 5502285-7 (Version None)
Quarter: 2007Q4

REPORT INFORMATION
  Report Type: 
  Country: None (occurrence: None)
  Receive Date: 20071030
  Receipt Date: 20071016
  Transmission Date: 20080405
  Serious: Yes (Other)
  Sender: FDA-Public Use
  Company Number: FR-RANBAXY-2007RR-10765

PATIENT

DRUGS (2)
  1. SERTRALINE [Suspect]
     Indication: DEPRESSION
     Dosage: 20 MG, QD
  2. TAXANE [Concomitant]
     Indication: BREAST CANCER

REACTIONS (1)
  - BLOOD ALKALINE PHOSPHATASE INCREASED [None]
